FAERS Safety Report 8414128-2 (Version None)
Quarter: 2012Q2

REPORT INFORMATION
  Report Type: 
  Country: None (occurrence: None)
  Receive Date: 20120605
  Receipt Date: 20120601
  Transmission Date: 20120825
  Serious: No
  Sender: FDA-Public Use
  Company Number: US-BAYER-2012-055472

PATIENT
  Sex: Male

DRUGS (1)
  1. MIRENA [Suspect]
     Dosage: 20 ?G/DAY
     Dates: start: 20060101, end: 20090101

REACTIONS (1)
  - PENILE PAIN [None]
